FAERS Safety Report 10061686 (Version 1)
Quarter: 2014Q2

REPORT INFORMATION
  Report Type: Spontaneous
  Country: US (occurrence: US)
  Receive Date: 20140407
  Receipt Date: 20140407
  Transmission Date: 20141212
  Serious: No
  Sender: FDA-Public Use
  Company Number: US-TARO-2013P1018553

PATIENT
  Age: 77 Year
  Sex: Male
  Weight: 60.33 kg

DRUGS (4)
  1. FLUOROURACIL TOPICAL CREAM USP 5% [Suspect]
     Route: 061
     Dates: start: 20130611, end: 20130806
  2. LEVOTHYROXINE [Concomitant]
  3. ASPIRIN [Concomitant]
  4. OMEPRAZOLE [Concomitant]

REACTIONS (10)
  - Application site erythema [Recovering/Resolving]
  - Application site scab [Recovering/Resolving]
  - Application site haemorrhage [Recovering/Resolving]
  - Application site vesicles [Recovering/Resolving]
  - Skin disorder [Recovering/Resolving]
  - Application site discolouration [Recovering/Resolving]
  - Erythema [Recovering/Resolving]
  - Dry skin [Recovering/Resolving]
  - Scab [Recovering/Resolving]
  - Application site exfoliation [Recovering/Resolving]
